FAERS Safety Report 13326567 (Version 1)
Quarter: 2017Q1

REPORT INFORMATION
  Report Type: Report from Study
  Country: US (occurrence: US)
  Receive Date: 20170311
  Receipt Date: 20170311
  Transmission Date: 20170428
  Serious: Yes (Other)
  Sender: FDA-Public Use
  Company Number: US-AMGEN-USASL2017035120

PATIENT
  Age: 67 Year
  Sex: Male

DRUGS (6)
  1. PROLIA [Suspect]
     Active Substance: DENOSUMAB
     Indication: BONE DENSITY ABNORMAL
     Dosage: 60 MG, Q6MO
     Route: 058
  2. AMIODARONE HCL [Concomitant]
     Active Substance: AMIODARONE HYDROCHLORIDE
     Dosage: 200 MG, UNK
     Dates: start: 20150420
  3. FUROSEMIDE. [Concomitant]
     Active Substance: FUROSEMIDE
     Dosage: 40 MG, UNK
     Route: 048
     Dates: start: 20140318
  4. ASPIRIN. [Concomitant]
     Active Substance: ASPIRIN
     Dosage: 81 MG, UNK
     Route: 048
     Dates: start: 20140318
  5. LEVOTHYROXINE. [Concomitant]
     Active Substance: LEVOTHYROXINE
     Dosage: 125 MUG, UNK
     Route: 048
     Dates: start: 20140318
  6. VERAPAMIL [Concomitant]
     Active Substance: VERAPAMIL HYDROCHLORIDE
     Dosage: 240 MG, UNK
     Route: 048
     Dates: start: 20140318

REACTIONS (14)
  - Back disorder [Unknown]
  - Atrial fibrillation [Unknown]
  - Full blood count abnormal [Unknown]
  - Osteoarthritis [Unknown]
  - Differential white blood cell count abnormal [Unknown]
  - Essential hypertension [Unknown]
  - Platelet count abnormal [Unknown]
  - Polymyalgia rheumatica [Unknown]
  - Spinal osteoarthritis [Unknown]
  - Peripheral swelling [Unknown]
  - Body mass index abnormal [Unknown]
  - Hyperparathyroidism [Unknown]
  - Spinal column stenosis [Unknown]
  - Off label use [Unknown]

NARRATIVE: CASE EVENT DATE: 20140509
